FAERS Safety Report 4381773-3 (Version None)
Quarter: 2004Q2

REPORT INFORMATION
  Report Type: 
  Country: None (occurrence: None)
  Receive Date: 20040615
  Receipt Date: 20040531
  Transmission Date: 20050107
  Serious: Yes (Hospitalization)
  Sender: FDA-Public Use
  Company Number: JP-JNJFOC-20040101541

PATIENT
  Age: 66 Year
  Sex: Female
  Weight: 70 kg

DRUGS (12)
  1. REMICADE [Suspect]
     Indication: RHEUMATOID ARTHRITIS
     Dosage: 3 MG/KG, 1 IN 1 AS NECESSARY, INTRAVENOUS DRIP
     Route: 041
     Dates: start: 20031030, end: 20031030
  2. REMICADE [Suspect]
     Indication: RHEUMATOID ARTHRITIS
     Dosage: 3 MG/KG, 1 IN 1 AS NECESSARY, INTRAVENOUS DRIP
     Route: 041
     Dates: start: 20031112, end: 20031112
  3. PREDNISOLONE [Concomitant]
  4. RHEUMATREX [Concomitant]
  5. AZULFIDINE [Concomitant]
  6. GLAKAY (MENATETRENONE) CAPSULES [Concomitant]
  7. TAKEPRON (LANSOPRAZONE) CAPSULES [Concomitant]
  8. LOXONIN (LOXOPROFEN SODIUM) [Concomitant]
  9. SELBEX (TEPRENONE) [Concomitant]
  10. VERAPAMIL HYDROCHLORIDE [Concomitant]
  11. CYTOTEC [Concomitant]
  12. MOHRUS TAPE (KETOPROFEN) [Concomitant]

REACTIONS (9)
  - DRUG INTERACTION [None]
  - FATIGUE [None]
  - LEUKOCYTOSIS [None]
  - LISTLESS [None]
  - PAROTITIS [None]
  - PHARYNGOLARYNGEAL PAIN [None]
  - THERAPEUTIC PRODUCT INEFFECTIVE [None]
  - THYROIDITIS SUBACUTE [None]
  - VIRAL INFECTION [None]
